FAERS Safety Report 25637968 (Version 4)
Quarter: 2025Q3

REPORT INFORMATION
  Report Type: Spontaneous
  Country: CA (occurrence: CA)
  Receive Date: 20250804
  Receipt Date: 20250926
  Transmission Date: 20251020
  Serious: Yes (Hospitalization, Other)
  Sender: PFIZER
  Company Number: CA-PFIZER INC-PV202500092691

PATIENT
  Age: 62 Year
  Sex: Female

DRUGS (2)
  1. MEKTOVI [Suspect]
     Active Substance: BINIMETINIB
     Indication: Malignant melanoma
     Dosage: 15 MG (30MG) BID
     Dates: start: 20220128
  2. BRAFTOVI [Suspect]
     Active Substance: ENCORAFENIB
     Indication: Malignant melanoma
     Dosage: 300 MG, 1X/DAY (75 MG TAKE 4 CAPSULES(300MG) BY MOUTH ONCE DAILY)
     Route: 048
     Dates: start: 20220128

REACTIONS (6)
  - Urinary tract infection [Unknown]
  - Brain oedema [Recovering/Resolving]
  - Aphasia [Recovering/Resolving]
  - Viral infection [Recovering/Resolving]
  - Seizure [Recovering/Resolving]
  - Off label use [Unknown]

NARRATIVE: CASE EVENT DATE: 20220128
